FAERS Safety Report 4497521-2 (Version None)
Quarter: 2004Q4

REPORT INFORMATION
  Report Type: 
  Country: None (occurrence: None)
  Receive Date: 20041104
  Receipt Date: 20041018
  Transmission Date: 20050328
  Serious: Yes (Death)
  Sender: FDA-Public Use
  Company Number: STA-AE-04-033

PATIENT
  Age: 59 Year
  Sex: Female

DRUGS (11)
  1. DILTIAZEM [Suspect]
     Dosage: 120 MG QD
  2. ATORVASTATIN CALCIUM [Suspect]
     Dosage: 40 MG QD
  3. ASPIRIN [Concomitant]
  4. NITROGLYCERIN [Concomitant]
  5. ISOSORBIDE MONOMITRATE [Concomitant]
  6. INSULIN [Concomitant]
  7. METOCLOPRAMIDE [Concomitant]
  8. VITAMIN D [Concomitant]
  9. OMEPRAZOLE [Concomitant]
  10. CALCIUM [Concomitant]
  11. ERYTHROPOICTIN [Concomitant]

REACTIONS (7)
  - ANGINA PECTORIS [None]
  - ASTHENIA [None]
  - BLOOD CREATINE PHOSPHOKINASE INCREASED [None]
  - CARDIAC ARREST [None]
  - MUSCULAR WEAKNESS [None]
  - MYOSITIS [None]
  - PERIPHERAL ISCHAEMIA [None]
